FAERS Safety Report 7622753-1 (Version None)
Quarter: 2011Q3

REPORT INFORMATION
  Report Type: 
  Country: None (occurrence: None)
  Receive Date: 20110719
  Receipt Date: 20110719
  Transmission Date: 20111222
  Serious: Yes (Life-Threatening, Hospitalization, Disabling)
  Sender: FDA-Public Use
  Company Number: None

PATIENT
  Sex: Male
  Weight: 70.7611 kg

DRUGS (1)
  1. LIPITOR [Suspect]
     Indication: LOW DENSITY LIPOPROTEIN INCREASED
     Dosage: OVER PERIOD OF TIME 1 TAB DAILY  TEN YEARS OR MORE

REACTIONS (7)
  - BLOOD PRESSURE DECREASED [None]
  - MALAISE [None]
  - SPEECH DISORDER [None]
  - TONGUE DISORDER [None]
  - MUSCULAR WEAKNESS [None]
  - MUSCLE INJURY [None]
  - DRUG HYPERSENSITIVITY [None]
